FAERS Safety Report 6128785-7 (Version None)
Quarter: 2009Q1

REPORT INFORMATION
  Report Type: 
  Country: None (occurrence: None)
  Receive Date: 20090320
  Receipt Date: 20031205
  Transmission Date: 20090719
  Serious: Yes (Hospitalization)
  Sender: FDA-Public Use
  Company Number: 005829

PATIENT
  Age: 5 Month
  Sex: Male
  Weight: 5.9 kg

DRUGS (24)
  1. BUSULFEX (BUSULFEX) INJECTION [Suspect]
     Indication: BONE MARROW TRANSPLANT
     Dosage: 1 MG/KG, Q6HR INTRAVENOUS
     Route: 042
     Dates: start: 20030726, end: 20030730
  2. CYCLOPHOSPHAMIDE [Suspect]
     Indication: BONE MARROW TRANSPLANT
     Dosage: 50 MG/KG, DAILY DOSE  INTRAVENOUS
     Route: 042
     Dates: start: 20030730, end: 20030802
  3. IMIPENEM (IMIPENEM) [Concomitant]
  4. CIPROFLOXACIN [Concomitant]
  5. TPN [Concomitant]
  6. VANCOMYCIN [Concomitant]
  7. ACYCLOVIR [Concomitant]
  8. URSODIOL [Concomitant]
  9. VORICONAZOLE (VORICONAZOLE) [Concomitant]
  10. CYCLOSPORINE [Concomitant]
  11. GANCICLOVIR [Concomitant]
  12. PHYTONADIONE [Concomitant]
  13. CLONAZEPAM [Concomitant]
  14. ONDANSETRON HCL [Concomitant]
  15. SODIUM CHLORIDE 0.9% [Concomitant]
  16. GLUCOSE W ELECTROLYTES (ELECTROLYTES NOS, GLUCOSE) [Concomitant]
  17. RANITIDINE [Concomitant]
  18. POTASSIUM CHLORIDE [Concomitant]
  19. GENTAMYCIN-MP (GENTAMICIN SULFATE) [Concomitant]
  20. ITRACONAZOLE [Concomitant]
  21. CEFTAZIDIME [Concomitant]
  22. HYDROXYZINE [Concomitant]
  23. FUROSEMIDE [Concomitant]
  24. DOMPERIDONE [Concomitant]

REACTIONS (11)
  - ANTITHROMBIN III DECREASED [None]
  - ASCITES [None]
  - BLOOD PRODUCT TRANSFUSION DEPENDENT [None]
  - CHOLESTASIS [None]
  - HAEMOGLOBIN DECREASED [None]
  - HEPATOMEGALY [None]
  - NEUTROPENIA [None]
  - THROMBOCYTOPENIA [None]
  - VENOOCCLUSIVE LIVER DISEASE [None]
  - WEIGHT INCREASED [None]
  - WHITE BLOOD CELL COUNT DECREASED [None]
